FAERS Safety Report 10475160 (Version 1)
Quarter: 2014Q3

REPORT INFORMATION
  Report Type: Spontaneous
  Country: US (occurrence: None)
  Receive Date: 20140924
  Receipt Date: 20140924
  Transmission Date: 20150326
  Serious: Yes (Hospitalization)
  Sender: FDA-Public Use
  Company Number: None

PATIENT
  Age: 78 Year
  Sex: Female

DRUGS (14)
  1. LASIX [Concomitant]
     Active Substance: FUROSEMIDE
  2. AMIODARONE [Concomitant]
     Active Substance: AMIODARONE
  3. ALLOPURINOL. [Concomitant]
     Active Substance: ALLOPURINOL
  4. LISINOPRIL. [Concomitant]
     Active Substance: LISINOPRIL
  5. PRADAXA [Suspect]
     Active Substance: DABIGATRAN ETEXILATE MESYLATE
     Indication: ATRIAL FIBRILLATION
     Dosage: 150MG ?BID?PO ?CHRONIC
     Route: 048
  6. ASPIRIN. [Suspect]
     Active Substance: ASPIRIN
     Dosage: 81MG?DAILY ?PO ?CHRONIC
     Route: 048
  7. LORATADINE. [Concomitant]
     Active Substance: LORATADINE
  8. MMW [Concomitant]
  9. DILAUDID [Concomitant]
     Active Substance: HYDROMORPHONE HYDROCHLORIDE
  10. ZOFRAN [Concomitant]
     Active Substance: ONDANSETRON HYDROCHLORIDE
  11. PLAQUENIL [Concomitant]
     Active Substance: HYDROXYCHLOROQUINE SULFATE
  12. COLACE [Concomitant]
     Active Substance: DOCUSATE SODIUM
  13. KCL [Concomitant]
     Active Substance: POTASSIUM CHLORIDE
  14. PROBIOTIC [Concomitant]
     Active Substance: PROBIOTICS NOS

REACTIONS (4)
  - Hypotension [None]
  - Rectal haemorrhage [None]
  - Drug interaction [None]
  - Coagulopathy [None]

NARRATIVE: CASE EVENT DATE: 20140412
